FAERS Safety Report 5512948-5 (Version None)
Quarter: 2007Q4

REPORT INFORMATION
  Report Type: 
  Country: None (occurrence: None)
  Receive Date: 20071112
  Receipt Date: 20071106
  Transmission Date: 20080405
  Serious: Yes (Hospitalization, Other)
  Sender: FDA-Public Use
  Company Number: US-MERCK-0709USA03383

PATIENT
  Age: 59 Year
  Sex: Female
  Weight: 55 kg

DRUGS (16)
  1. FOSAMAX [Suspect]
     Indication: OSTEOPOROSIS
     Route: 048
     Dates: start: 20030101, end: 20070801
  2. AFRIN [Concomitant]
     Route: 065
  3. TOPROL-XL [Concomitant]
     Route: 065
  4. CALCIUM (UNSPECIFIED) [Concomitant]
     Route: 065
  5. ALBUTEROL [Concomitant]
     Route: 065
  6. FLEXERIL [Concomitant]
     Route: 065
  7. COUMADIN [Concomitant]
     Route: 065
  8. IRON (UNSPECIFIED) [Concomitant]
     Route: 065
  9. AMITRIPTYLINE HYDROCHLORIDE [Concomitant]
     Route: 065
  10. LASIX [Concomitant]
     Route: 065
  11. ZESTRIL [Concomitant]
     Route: 065
  12. LANOXIN [Concomitant]
     Route: 065
  13. SPIRONOLACTONE [Concomitant]
     Route: 065
  14. ULTRAM [Concomitant]
     Route: 065
  15. ALLOPURINOL [Concomitant]
     Route: 065
  16. MAGNESIUM (UNSPECIFIED) [Concomitant]
     Route: 065

REACTIONS (6)
  - ATRIAL FIBRILLATION [None]
  - ATRIAL FLUTTER [None]
  - CARDIAC FAILURE CONGESTIVE [None]
  - DYSPNOEA [None]
  - LUNG ADENOCARCINOMA [None]
  - OSTEONECROSIS [None]
